FAERS Safety Report 15499201 (Version 1)
Quarter: 2018Q4

REPORT INFORMATION
  Report Type: Spontaneous
  Country: US (occurrence: US)
  Receive Date: 20181006
  Receipt Date: 20181006
  Transmission Date: 20190205
  Serious: Yes (Disabling)
  Sender: FDA-Public Use
  Company Number: None

PATIENT
  Age: 45 Year
  Sex: Female
  Weight: 65.25 kg

DRUGS (5)
  1. PORCHE [Concomitant]
  2. ALTAVERA [Suspect]
     Active Substance: ETHINYL ESTRADIOL\LEVONORGESTREL
     Indication: ORAL CONTRACEPTION
     Dosage: ?          QUANTITY:1 TABLET(S);?
     Route: 048
     Dates: start: 20180909, end: 20181006
  3. DOXYALAMINE SUCCINATE [Concomitant]
  4. ZOLOFT [Concomitant]
     Active Substance: SERTRALINE HYDROCHLORIDE
  5. MELATONIN [Concomitant]
     Active Substance: MELATONIN

REACTIONS (7)
  - Libido decreased [None]
  - Menstruation irregular [None]
  - Muscle spasms [None]
  - Product complaint [None]
  - Manufacturing materials issue [None]
  - Product label issue [None]
  - Drug ineffective [None]

NARRATIVE: CASE EVENT DATE: 20180912
